FAERS Safety Report 7020720-2 (Version None)
Quarter: 2010Q3

REPORT INFORMATION
  Report Type: 
  Country: None (occurrence: None)
  Receive Date: 20100927
  Receipt Date: 20100906
  Transmission Date: 20110219
  Serious: Yes (Hospitalization)
  Sender: FDA-Public Use
  Company Number: JPI-P-012183

PATIENT
  Age: 33 Year
  Sex: Female

DRUGS (5)
  1. XYREM [Suspect]
     Indication: CATAPLEXY
     Dosage: ORAL, 9 GM (4.5 GM, 2 IN 1 D), ORAL
     Route: 048
     Dates: start: 20100101, end: 20100101
  2. XYREM [Suspect]
     Indication: CATAPLEXY
     Dosage: ORAL, 9 GM (4.5 GM, 2 IN 1 D), ORAL
     Route: 048
     Dates: start: 20100101, end: 20100101
  3. BUPROPION [Concomitant]
  4. VENLAFAXINE HCL [Concomitant]
  5. METHYLPHENIDATE [Concomitant]

REACTIONS (4)
  - ABNORMAL BEHAVIOUR [None]
  - ACUTE PSYCHOSIS [None]
  - AGGRESSION [None]
  - INSOMNIA [None]
